FAERS Safety Report 7990384-X (Version None)
Quarter: 2011Q4

REPORT INFORMATION
  Report Type: 
  Country: None (occurrence: None)
  Receive Date: 20111219
  Receipt Date: 20110223
  Transmission Date: 20120403
  Serious: No
  Sender: FDA-Public Use
  Company Number: US-ASTRAZENECA-2004UW23448

PATIENT
  Age: 55 Year
  Sex: Female
  Weight: 61.2 kg

DRUGS (2)
  1. CRESTOR [Suspect]
     Indication: BLOOD CHOLESTEROL INCREASED
     Route: 048
     Dates: start: 20010101
  2. CRESTOR [Suspect]
     Route: 048
     Dates: start: 20110201

REACTIONS (7)
  - VAGINAL HAEMORRHAGE [None]
  - HIGH DENSITY LIPOPROTEIN DECREASED [None]
  - MENORRHAGIA [None]
  - ANAEMIA [None]
  - ALOPECIA [None]
  - EPISTAXIS [None]
  - UTERINE LEIOMYOMA [None]
